FAERS Safety Report 8037156-8 (Version None)
Quarter: 2011Q4

REPORT INFORMATION
  Report Type: 
  Country: None (occurrence: None)
  Receive Date: 20111202
  Receipt Date: 20110204
  Transmission Date: 20120403
  Serious: Yes (Other)
  Sender: FDA-Public Use
  Company Number: 2011SP005496

PATIENT
  Age: 31 Year
  Sex: Female
  Weight: 45.3597 kg

DRUGS (1)
  1. NUVARING [Suspect]
     Indication: CONTRACEPTION
     Dosage: VAG
     Route: 067
     Dates: start: 20101228, end: 20110112

REACTIONS (2)
  - THROMBOSIS [None]
  - INCORRECT DRUG ADMINISTRATION DURATION [None]
